FAERS Safety Report 8880248 (Version 1)
Quarter: 2012Q4

REPORT INFORMATION
  Report Type: 
  Country: BA (occurrence: BA)
  Receive Date: 20121031
  Receipt Date: 20121031
  Transmission Date: 20130627
  Serious: Yes (Hospitalization)
  Sender: FDA-Public Use
  Company Number: PHHY2012BA097205

PATIENT
  Age: 51 Year
  Sex: Female

DRUGS (2)
  1. CLOZAPINE [Suspect]
     Indication: SCHIZOPHRENIA
     Dosage: 300 mg
  2. RISPERIDONE [Suspect]
     Indication: SCHIZOPHRENIA
     Dosage: 4 mg

REACTIONS (5)
  - Hyperprolactinaemia [Unknown]
  - Pulmonary embolism [Unknown]
  - Sinus tachycardia [Unknown]
  - Blood pressure increased [Unknown]
  - Cerebral artery embolism [Unknown]
